FAERS Safety Report 10551213 (Version 4)
Quarter: 2015Q3

REPORT INFORMATION
  Report Type: Report from Study
  Country: NL (occurrence: NL)
  Receive Date: 20141029
  Receipt Date: 20150715
  Transmission Date: 20151125
  Serious: Yes (Hospitalization, Disabling)
  Sender: FDA-Public Use
  Company Number: NL-ROCHE-1481962

PATIENT
  Age: 41 Year
  Sex: Male
  Weight: 119 kg

DRUGS (3)
  1. AMLODIPINE [Concomitant]
     Active Substance: AMLODIPINE BESYLATE
     Indication: HYPERTENSION
     Route: 048
     Dates: start: 20140702
  2. LOMUSTINE. [Suspect]
     Active Substance: LOMUSTINE
     Indication: BRAIN NEOPLASM MALIGNANT
     Dosage: DATE OF MOST RECENT DOSE : 04/SEP/2013
     Route: 048
     Dates: start: 20140204
  3. BEVACIZUMAB [Suspect]
     Active Substance: BEVACIZUMAB
     Indication: BRAIN NEOPLASM MALIGNANT
     Dosage: DATE OF MOST RECENT DOSE : 08/OCT/2014
     Route: 042
     Dates: start: 20130204

REACTIONS (1)
  - Blindness [Not Recovered/Not Resolved]

NARRATIVE: CASE EVENT DATE: 20141022
